FAERS Safety Report 10908181 (Version 2)
Quarter: 2015Q3

REPORT INFORMATION
  Report Type: Spontaneous
  Country: US (occurrence: US)
  Receive Date: 20150312
  Receipt Date: 20150924
  Transmission Date: 20151125
  Serious: No
  Sender: FDA-Public Use
  Company Number: US-INCYTE CORPORATION-2015IN000324

PATIENT
  Age: 73 Year
  Sex: Female
  Weight: 63.95 kg

DRUGS (22)
  1. JAKAFI [Suspect]
     Active Substance: RUXOLITINIB
     Indication: MYELOFIBROSIS
     Dosage: 10 MG, BID
     Route: 048
     Dates: start: 20150107, end: 201502
  2. RESTASIS [Concomitant]
     Active Substance: CYCLOSPORINE
  3. LIDODERM [Concomitant]
     Active Substance: LIDOCAINE
  4. JAKAFI [Suspect]
     Active Substance: RUXOLITINIB
     Dosage: 20 MG, BID
     Route: 048
     Dates: start: 20150218
  5. ALBUTEROL                          /00139501/ [Concomitant]
     Active Substance: ALBUTEROL
  6. ZOCOR [Concomitant]
     Active Substance: SIMVASTATIN
  7. RECLAST [Concomitant]
     Active Substance: ZOLEDRONIC ACID
  8. CALCIUM [Concomitant]
     Active Substance: CALCIUM
  9. FLOVENT [Concomitant]
     Active Substance: FLUTICASONE PROPIONATE
  10. WARFARIN [Concomitant]
     Active Substance: WARFARIN
  11. VITAMIN B [Concomitant]
     Active Substance: VITAMIN B
  12. SODIUM BICARBONATE. [Concomitant]
     Active Substance: SODIUM BICARBONATE
  13. DEPAKOTE [Concomitant]
     Active Substance: DIVALPROEX SODIUM
  14. ASPIRIN. [Concomitant]
     Active Substance: ASPIRIN
  15. OMEPRAZOLE. [Concomitant]
     Active Substance: OMEPRAZOLE
  16. ZOLPIDEM [Concomitant]
     Active Substance: ZOLPIDEM\ZOLPIDEM TARTRATE
  17. HYDROXYUREA. [Concomitant]
     Active Substance: HYDROXYUREA
     Indication: POLYCYTHAEMIA
     Dosage: UNK
     Dates: start: 1992
  18. ATROVENT [Concomitant]
     Active Substance: IPRATROPIUM BROMIDE
  19. FISH OIL [Concomitant]
     Active Substance: FISH OIL
  20. TYLENOL [Concomitant]
     Active Substance: ACETAMINOPHEN
  21. MIRALAX [Concomitant]
     Active Substance: POLYETHYLENE GLYCOL 3350
  22. TYLENOL WITH CODEINE [Concomitant]
     Active Substance: ACETAMINOPHEN\CODEINE PHOSPHATE

REACTIONS (7)
  - Constipation [Not Recovered/Not Resolved]
  - Back pain [Not Recovered/Not Resolved]
  - Drug dose omission [Not Recovered/Not Resolved]
  - International normalised ratio decreased [Not Recovered/Not Resolved]
  - Cognitive disorder [Not Recovered/Not Resolved]
  - Alopecia [Not Recovered/Not Resolved]
  - Laboratory test abnormal [Not Recovered/Not Resolved]

NARRATIVE: CASE EVENT DATE: 20141228
